FAERS Safety Report 8151071 (Version 4)
Quarter: 2013Q2

REPORT INFORMATION
  Report Type: Spontaneous
  Country: US (occurrence: US)
  Receive Date: 20110922
  Receipt Date: 20130626
  Transmission Date: 20140414
  Serious: No
  Sender: FDA-Public Use
  Company Number: US-ASTRAZENECA-2010SE56532

PATIENT
  Age: 52 Year
  Sex: Female
  Weight: 76.2 kg

DRUGS (32)
  1. SEROQUEL [Suspect]
     Indication: DEPRESSION
     Dosage: 100 MG TO 150 MG AT BEDTIME DEPENDING ON HER SYMPTOMS
     Route: 048
  2. SEROQUEL [Suspect]
     Indication: BIPOLAR II DISORDER
     Dosage: 100 MG TO 150 MG AT BEDTIME DEPENDING ON HER SYMPTOMS
     Route: 048
  3. SEROQUEL [Suspect]
     Indication: SLEEP DISORDER
     Dosage: 100 MG TO 150 MG AT BEDTIME DEPENDING ON HER SYMPTOMS
     Route: 048
  4. SEROQUEL [Suspect]
     Indication: MAJOR DEPRESSION
     Dosage: 100 MG TO 150 MG AT BEDTIME DEPENDING ON HER SYMPTOMS
     Route: 048
  5. SEROQUEL [Suspect]
     Indication: DEPRESSION
     Route: 048
     Dates: start: 2008
  6. SEROQUEL [Suspect]
     Indication: BIPOLAR II DISORDER
     Route: 048
     Dates: start: 2008
  7. SEROQUEL [Suspect]
     Indication: SLEEP DISORDER
     Route: 048
     Dates: start: 2008
  8. SEROQUEL [Suspect]
     Indication: MAJOR DEPRESSION
     Route: 048
     Dates: start: 2008
  9. SEROQUEL [Suspect]
     Indication: DEPRESSION
     Route: 048
     Dates: start: 2007
  10. SEROQUEL [Suspect]
     Indication: BIPOLAR II DISORDER
     Route: 048
     Dates: start: 2007
  11. SEROQUEL [Suspect]
     Indication: SLEEP DISORDER
     Route: 048
     Dates: start: 2007
  12. SEROQUEL [Suspect]
     Indication: MAJOR DEPRESSION
     Route: 048
     Dates: start: 2007
  13. SEROQUEL [Suspect]
     Indication: DEPRESSION
     Route: 048
  14. SEROQUEL [Suspect]
     Indication: BIPOLAR II DISORDER
     Route: 048
  15. SEROQUEL [Suspect]
     Indication: SLEEP DISORDER
     Route: 048
  16. SEROQUEL [Suspect]
     Indication: MAJOR DEPRESSION
     Route: 048
  17. CELEXA [Suspect]
     Route: 065
  18. CELEXA [Suspect]
     Route: 065
     Dates: start: 2006
  19. CELEXA [Suspect]
     Route: 065
  20. XANAX [Concomitant]
  21. KLONOPIN [Concomitant]
     Indication: ANXIETY
     Dates: start: 200607
  22. ZOLOFT [Concomitant]
  23. RESTORIL [Concomitant]
  24. LEVOTHYROXINE [Concomitant]
     Indication: THYROID DISORDER
     Dates: start: 201304
  25. ASPIRIN [Concomitant]
     Dates: start: 201304
  26. INHALER [Concomitant]
  27. FISH OIL [Concomitant]
  28. VITAMIN B [Concomitant]
  29. VITAMIN D [Concomitant]
  30. GABATRIL [Concomitant]
  31. ANTIDEPRESSANTS [Concomitant]
     Indication: NECK PAIN
  32. VENTOLIN [Concomitant]
     Indication: ANXIETY
     Dosage: 1-2 PUFFS PRN

REACTIONS (18)
  - Hypothyroidism [Unknown]
  - Vitamin D decreased [Unknown]
  - Oedema [Unknown]
  - Hypoproteinaemia [Unknown]
  - Acute stress disorder [Unknown]
  - Adverse drug reaction [Unknown]
  - Tachyphrenia [Unknown]
  - Weight increased [Unknown]
  - Asthenia [Unknown]
  - Anxiety [Unknown]
  - Tremor [Unknown]
  - Feeling abnormal [Unknown]
  - Crying [Unknown]
  - Drug withdrawal syndrome [Unknown]
  - Confusional state [Unknown]
  - Nerve injury [Unknown]
  - Therapeutic response unexpected [Unknown]
  - Drug dose omission [Unknown]
